FAERS Safety Report 21627359 (Version 1)
Quarter: 2022Q4

REPORT INFORMATION
  Report Type: Spontaneous
  Country: US (occurrence: None)
  Receive Date: 20221121
  Receipt Date: 20221121
  Transmission Date: 20230113
  Serious: No
  Sender: FDA-Public Use
  Company Number: None

PATIENT
  Age: 47 Year
  Sex: Female
  Weight: 90.72 kg

DRUGS (6)
  1. IBRANCE [Suspect]
     Active Substance: PALBOCICLIB
     Indication: Breast cancer
     Dosage: 125MG 21D ON 7D OFF ORAL?
     Route: 048
  2. LIPITOR [Concomitant]
     Active Substance: ATORVASTATIN CALCIUM
  3. LETROZOLE [Concomitant]
     Active Substance: LETROZOLE
  4. LORATADINE [Concomitant]
     Active Substance: LORATADINE
  5. METHIMAZOLE [Concomitant]
     Active Substance: METHIMAZOLE
  6. ATIVAN [Concomitant]
     Active Substance: LORAZEPAM

REACTIONS (3)
  - Thyroid cancer [None]
  - Therapy interrupted [None]
  - White blood cell count decreased [None]
